FAERS Safety Report 9278401 (Version 1)
Quarter: 2012Q4

REPORT INFORMATION
  Report Type: Spontaneous
  Country: ES (occurrence: None)
  Receive Date: 20121109
  Receipt Date: 20121109
  Transmission Date: 20130627
  Serious: Yes (Other)
  Sender: FDA-Public Use
  Company Number: 2012S1000349

PATIENT
  Age: 48 Year
  Sex: Male
  Weight: 90 kg

DRUGS (21)
  1. CUBICIN [Suspect]
     Route: 042
     Dates: start: 20110910, end: 20110914
  2. MERONEM [Suspect]
     Route: 042
     Dates: start: 20110905, end: 20110914
  3. OMEPRAZOLE (OMEPRAZOLE) [Suspect]
     Route: 048
     Dates: start: 20110825, end: 20111007
  4. TAZOCEL [Suspect]
     Route: 042
     Dates: start: 20110914, end: 20110919
  5. MERONEM [Suspect]
     Route: 042
     Dates: start: 20110905, end: 20110914
  6. ALLOPURINOL [Suspect]
     Route: 048
     Dates: start: 20110825, end: 20110908
  7. ACICLOVIR [Suspect]
     Route: 042
     Dates: start: 20110911, end: 20110913
  8. AMPHOTERICIN B [Suspect]
     Dates: start: 20110916, end: 20110926
  9. CLEXANE (ENOXAPARIN SODIUM) [Suspect]
     Route: 058
     Dates: start: 20110825, end: 20110826
  10. LACTULOSE [Suspect]
     Route: 048
     Dates: start: 20110831, end: 20110914
  11. HEPARIN SODIUM [Suspect]
     Dosage: ; QD ;
     Dates: start: 20110907, end: 20110930
  12. LACTULOSE [Suspect]
     Route: 048
     Dates: start: 20110831, end: 20110914
  13. HIBOR (HEPARIN SODIUM) [Suspect]
     Dosage: ; QD ;
     Dates: start: 20110907, end: 20110930
  14. CEFEPIME (CEFEPIME) [Suspect]
     Route: 042
     Dates: start: 20110826, end: 20110903
  15. NOXAFIL (POSACONAZOLE) [Suspect]
     Route: 048
     Dates: start: 20110902, end: 20110917
  16. CLOXACILLIN (CLOXACILLIN) [Suspect]
     Route: 048
     Dates: start: 20110831, end: 20110916
  17. DEXCHLORPHENIRAMINE MALEATE (DEXCHLORPHENIDINE MALEATE) [Suspect]
     Route: 048
     Dates: start: 20110916, end: 20110922
  18. FUROSEMIDE (FUROSEMIDE) [Suspect]
  19. UROKINASE (UROKINASE) [Suspect]
     Indication: DRUG USE FOR UNKNOWN INDICATION
     Dates: start: 20110915, end: 20110915
  20. VESANOID (TRETINOIN) [Suspect]
     Indication: ACUTE PROMYELOCYTIC LEUKEMIA
     Route: 048
     Dates: start: 20110826, end: 20111007
  21. AAA [Suspect]

REACTIONS (2)
  - Myositis [None]
  - Drug interaction [None]
